FAERS Safety Report 5595396-1 (Version None)
Quarter: 2008Q1

REPORT INFORMATION
  Report Type: 
  Country: None (occurrence: None)
  Receive Date: 20080118
  Receipt Date: 20080116
  Transmission Date: 20080703
  Serious: Yes (Hospitalization)
  Sender: FDA-Public Use
  Company Number: US-BAYER-200711073BWH

PATIENT
  Age: 65 Year
  Sex: Male
  Weight: 84 kg

DRUGS (11)
  1. SORAFENIB OR PLACEBO [Suspect]
     Indication: METASTATIC MALIGNANT MELANOMA
     Dosage: TOTAL DAILY DOSE: 800 MG  UNIT DOSE: 200 MG
     Route: 048
     Dates: start: 20070131, end: 20070217
  2. PACLITAXEL [Suspect]
     Indication: METASTATIC MALIGNANT MELANOMA
     Dosage: UNIT DOSE: 225 MG/M2
     Route: 042
     Dates: start: 20070130, end: 20070130
  3. CARBOPLATIN [Suspect]
     Indication: METASTATIC MALIGNANT MELANOMA
     Route: 042
     Dates: start: 20070130, end: 20070130
  4. ATENOLOL [Concomitant]
  5. LIPITOR [Concomitant]
  6. ASPIRIN [Concomitant]
  7. XANAX [Concomitant]
  8. VICODIN [Concomitant]
  9. LUNESTA [Concomitant]
  10. IBUPROFEN [Concomitant]
  11. GLUCOSAMINE [Concomitant]

REACTIONS (3)
  - ABSCESS INTESTINAL [None]
  - DEHYDRATION [None]
  - LARGE INTESTINE PERFORATION [None]
